FAERS Safety Report 7815707-3 (Version None)
Quarter: 2011Q4

REPORT INFORMATION
  Report Type: 
  Country: None (occurrence: None)
  Receive Date: 20111012
  Receipt Date: 20110919
  Transmission Date: 20120403
  Serious: Yes (Hospitalization)
  Sender: FDA-Public Use
  Company Number: 2011PROUSA00630

PATIENT
  Age: 76 Year
  Sex: Male
  Weight: 84 kg

DRUGS (9)
  1. PROVENGE [Suspect]
     Indication: PROSTATE CANCER METASTATIC
     Dosage: 250 ML, SINGLE, INTRAVENOUS
     Route: 042
     Dates: start: 20110811, end: 20110811
  2. AVODART [Concomitant]
  3. PRILOSEC /00661201/ (OMEPRAZOLE) CAPSULE [Concomitant]
  4. ZOMETA [Concomitant]
  5. ASPIRIN [Concomitant]
  6. LISINOPRIL [Concomitant]
  7. PLAVIX [Concomitant]
  8. RISPERDAL [Concomitant]
  9. LUPRON [Concomitant]

REACTIONS (12)
  - RED BLOOD CELL COUNT DECREASED [None]
  - ASTHENIA [None]
  - HYDRONEPHROSIS [None]
  - HYPERTENSION [None]
  - BACTERIAL SEPSIS [None]
  - URINARY RETENTION [None]
  - FATIGUE [None]
  - FAILURE TO THRIVE [None]
  - HAEMOGLOBIN DECREASED [None]
  - PNEUMONIA [None]
  - DIARRHOEA [None]
  - MALNUTRITION [None]
